FAERS Safety Report 5368951-1 (Version None)
Quarter: 2007Q2

REPORT INFORMATION
  Report Type: 
  Country: None (occurrence: None)
  Receive Date: 20070625
  Receipt Date: 20061129
  Transmission Date: 20071010
  Serious: No
  Sender: FDA-Public Use
  Company Number: US-ASTRAZENECA-2006UW26763

PATIENT

DRUGS (3)
  1. CRESTOR [Suspect]
     Route: 048
     Dates: start: 20040101, end: 20050601
  2. CRESTOR [Suspect]
     Route: 048
  3. LEVAQUIN [Suspect]
     Indication: BRONCHITIS
     Route: 048
     Dates: start: 20050607

REACTIONS (2)
  - DRUG INTERACTION [None]
  - PAIN IN EXTREMITY [None]
